FAERS Safety Report 11178388 (Version 2)
Quarter: 2015Q2

REPORT INFORMATION
  Report Type: Report from Study
  Country: NL (occurrence: NL)
  Receive Date: 20150610
  Receipt Date: 20150617
  Transmission Date: 20150821
  Serious: Yes (Death, Other)
  Sender: FDA-Public Use
  Company Number: NL-GLAXOSMITHKLINE-NL2015GSK076245

PATIENT
  Age: 71 Year
  Sex: Female
  Weight: 98 kg

DRUGS (2)
  1. PAZOPANIB [Suspect]
     Active Substance: PAZOPANIB
     Indication: ENDOMETRIAL CANCER
     Dosage: 800 MG, QD
     Route: 048
     Dates: start: 20150411
  2. CEFUROXIME. [Concomitant]
     Active Substance: CEFUROXIME
     Indication: INFECTION
     Dosage: UNK

REACTIONS (2)
  - Sepsis [Fatal]
  - Pyrexia [Fatal]

NARRATIVE: CASE EVENT DATE: 20150529
